FAERS Safety Report 4998502-2 (Version None)
Quarter: 2006Q2

REPORT INFORMATION
  Report Type: 
  Country: None (occurrence: None)
  Receive Date: 20060508
  Receipt Date: 20060419
  Transmission Date: 20061013
  Serious: Yes (Hospitalization)
  Sender: FDA-Public Use
  Company Number: 2006054753

PATIENT
  Age: 40 Year
  Sex: Male

DRUGS (4)
  1. FRAGMIN [Suspect]
     Indication: ILL-DEFINED DISORDER
     Dosage: 5000 I.U., SUBCUTANEOUS
     Route: 058
     Dates: start: 20060221, end: 20060223
  2. AMOXICILLIN TRIHYDRATE/CLAVULANATE POTASSIUM [Suspect]
     Indication: ILL-DEFINED DISORDER
     Dosage: 3 GRAM (INTERVAL: EVERY DAY), ORAL
     Route: 048
     Dates: start: 20060221, end: 20060223
  3. HEXAMIDINE                 (HEXAMIDINE) [Suspect]
     Indication: ILL-DEFINED DISORDER
     Dosage: TOPICAL
     Route: 061
     Dates: start: 20060221, end: 20060223
  4. CALCIPOTRIOL             (CALCIPOTRIOL) [Concomitant]

REACTIONS (9)
  - BODY TEMPERATURE INCREASED [None]
  - DRUG TOXICITY [None]
  - ECZEMA [None]
  - ERYTHEMA [None]
  - PITTING OEDEMA [None]
  - PRURITUS [None]
  - RASH [None]
  - SKIN EXFOLIATION [None]
  - SKIN LESION [None]
